FAERS Safety Report 8916977 (Version 3)
Quarter: 2013Q2

REPORT INFORMATION
  Report Type: Spontaneous
  Country: US (occurrence: US)
  Receive Date: 20121120
  Receipt Date: 20130426
  Transmission Date: 20140414
  Serious: No
  Sender: FDA-Public Use
  Company Number: US-009507513-1211USA005030

PATIENT
  Age: 23 Year
  Sex: Female
  Weight: 56.69 kg

DRUGS (2)
  1. IMPLANON [Suspect]
     Indication: CONTRACEPTION
     Dosage: 1 DF, UNK
     Route: 059
     Dates: start: 20091104
  2. SELMALEN [Concomitant]
     Indication: PAIN
     Dosage: UNK
     Dates: start: 2012

REACTIONS (7)
  - Road traffic accident [Unknown]
  - Pain [Unknown]
  - Dizziness [Unknown]
  - Vomiting [Unknown]
  - Incorrect drug administration duration [Unknown]
  - Menstruation irregular [Unknown]
  - Menorrhagia [Not Recovered/Not Resolved]
